FAERS Safety Report 8361817-4 (Version None)
Quarter: 2012Q2

REPORT INFORMATION
  Report Type: 
  Country: None (occurrence: None)
  Receive Date: 20120515
  Receipt Date: 20120507
  Transmission Date: 20120825
  Serious: Yes (Other)
  Sender: FDA-Public Use
  Company Number: JP-GLAXOSMITHKLINE-B0796972A

PATIENT
  Sex: Male

DRUGS (15)
  1. LENDORMIN [Concomitant]
     Dosage: .25MG PER DAY
     Route: 048
  2. NITRAZEPAM [Concomitant]
     Dosage: 5MG PER DAY
     Route: 048
  3. LAMICTAL [Suspect]
     Dosage: 50MG PER DAY
     Route: 048
     Dates: start: 20111105, end: 20111202
  4. LAMICTAL [Suspect]
     Dosage: 100MG PER DAY
     Route: 048
     Dates: start: 20111203, end: 20120106
  5. LAMICTAL [Suspect]
     Dosage: 12.5MG PER DAY
     Route: 048
     Dates: start: 20120218, end: 20120303
  6. LITHIUM CARBONATE [Concomitant]
     Indication: BIPOLAR DISORDER
     Dosage: 1600MG PER DAY
     Route: 048
  7. DOGMATYL [Concomitant]
     Dosage: 450MG PER DAY
     Route: 048
  8. LAMICTAL [Suspect]
     Dosage: 25MG PER DAY
     Route: 048
     Dates: start: 20111022, end: 20111104
  9. DEPAKENE [Concomitant]
     Indication: BIPOLAR DISORDER
     Dosage: 600MG PER DAY
     Route: 048
  10. LAMICTAL [Suspect]
     Indication: BIPOLAR DISORDER
     Dosage: 25MG TWICE PER DAY
     Route: 048
     Dates: start: 20111008, end: 20111021
  11. LAMICTAL [Suspect]
     Dosage: 50MG PER DAY
     Route: 048
     Dates: start: 20120107, end: 20120120
  12. LEXOTAN [Concomitant]
     Indication: BIPOLAR DISORDER
     Dosage: 45MG PER DAY
     Route: 048
  13. SILECE [Concomitant]
     Dosage: 2MG PER DAY
     Route: 048
  14. HALCION [Concomitant]
     Dosage: .25MG PER DAY
     Route: 048
  15. LAMICTAL [Suspect]
     Dosage: 25MG PER DAY
     Route: 048
     Dates: start: 20120121, end: 20120217

REACTIONS (2)
  - MANIA [None]
  - IMPULSE-CONTROL DISORDER [None]
